FAERS Safety Report 4682209-5 (Version None)
Quarter: 2005Q2

REPORT INFORMATION
  Report Type: 
  Country: None (occurrence: None)
  Receive Date: 20050603
  Receipt Date: 20050603
  Transmission Date: 20051028
  Serious: Yes (Other)
  Sender: FDA-Public Use
  Company Number: None

PATIENT
  Age: 51 Year
  Sex: Female
  Weight: 99.7913 kg

DRUGS (6)
  1. CLOTRIMAZOLE AND BETAMETHASONE DIPROPIONATE [Suspect]
     Indication: PRURITUS
     Dosage: TSP. ONCE A DAY TOPICAL
     Route: 061
     Dates: start: 20000101, end: 20041223
  2. ALLEGRA [Concomitant]
  3. TOPREL XL [Concomitant]
  4. NORVASC [Concomitant]
  5. HYDROCHLOROTHAZIDE [Concomitant]
  6. XALATAN [Concomitant]

REACTIONS (4)
  - APPLICATION SITE REACTION [None]
  - INCORRECT ROUTE OF DRUG ADMINISTRATION [None]
  - MEDICATION ERROR [None]
  - SKIN STRIAE [None]
